FAERS Safety Report 9587380 (Version 1)
Quarter: 2013Q4

REPORT INFORMATION
  Report Type: Spontaneous
  Country: US (occurrence: US)
  Receive Date: 20131003
  Receipt Date: 20131003
  Transmission Date: 20140711
  Serious: No
  Sender: FDA-Public Use
  Company Number: US-009507513-1310USA000500

PATIENT
  Sex: Female
  Weight: 79.37 kg

DRUGS (2)
  1. CLARITIN [Suspect]
     Indication: HYPERSENSITIVITY
     Dosage: UNK, PRN
     Route: 048
     Dates: start: 20130919, end: 20130920
  2. CLARITIN [Suspect]
     Dosage: 10 MG, UNKNOWN
     Route: 048
     Dates: start: 20130920

REACTIONS (2)
  - Accidental overdose [Unknown]
  - No adverse event [Unknown]
